FAERS Safety Report 26030856 (Version 1)
Quarter: 2025Q4

REPORT INFORMATION
  Report Type: Report from Study
  Country: ZA (occurrence: ZA)
  Receive Date: 20251112
  Receipt Date: 20251112
  Transmission Date: 20260117
  Serious: Yes (Other)
  Sender: ROCHE
  Company Number: ZA-ROCHE-10000427907

PATIENT
  Sex: Male

DRUGS (1)
  1. OCREVUS [Suspect]
     Active Substance: OCRELIZUMAB
     Indication: Primary progressive multiple sclerosis
     Dosage: THEREAFTER 600MG EVERY AFTER 6 MONTHS
     Route: 042
     Dates: start: 20220915

REACTIONS (4)
  - Expanded disability status scale score increased [Unknown]
  - Magnetic resonance imaging head abnormal [Unknown]
  - Magnetic resonance imaging abnormal [Unknown]
  - Magnetic resonance imaging spinal abnormal [Unknown]
